FAERS Safety Report 8838501 (Version 2)
Quarter: 2012Q4

REPORT INFORMATION
  Report Type: 
  Country: US (occurrence: US)
  Receive Date: 20121012
  Receipt Date: 20121025
  Transmission Date: 20130627
  Serious: Yes (Other)
  Sender: FDA-Public Use
  Company Number: US-PFIZER INC-2012252300

PATIENT
  Age: 35 Year
  Sex: Male
  Weight: 124.72 kg

DRUGS (1)
  1. NEURONTIN [Suspect]
     Indication: MERALGIA PARAESTHETICA
     Dosage: UNK, 1x/day
     Route: 048
     Dates: start: 2000, end: 2000

REACTIONS (1)
  - Suicidal ideation [Recovered/Resolved]
